FAERS Safety Report 5535647-2 (Version None)
Quarter: 2007Q4

REPORT INFORMATION
  Report Type: 
  Country: None (occurrence: None)
  Receive Date: 20071120
  Receipt Date: 20070808
  Transmission Date: 20080405
  Serious: No
  Sender: FDA-Public Use
  Company Number: WAES 0708USA01596

PATIENT
  Sex: Female

DRUGS (1)
  1. JANUVIA [Suspect]
     Dosage: 25 MG/PO
     Route: 048
     Dates: start: 20070807

REACTIONS (2)
  - PHARYNGOLARYNGEAL PAIN [None]
  - TONSILLAR DISORDER [None]
